FAERS Safety Report 6338700-9 (Version None)
Quarter: 2009Q3

REPORT INFORMATION
  Report Type: 
  Country: None (occurrence: None)
  Receive Date: 20090901
  Receipt Date: 20090720
  Transmission Date: 20100115
  Serious: Yes (Hospitalization)
  Sender: FDA-Public Use
  Company Number: 8049200

PATIENT
  Sex: Male

DRUGS (5)
  1. KEPPRA [Suspect]
     Indication: GLIOBLASTOMA
     Dosage: 500 MG 2/D PO
     Route: 048
  2. KEPPRA [Suspect]
     Indication: CONVULSION
     Dosage: 1500 MG 2/D IV
     Route: 042
  3. KEPPRA [Suspect]
     Indication: GLIOBLASTOMA
     Dosage: 1500 MG 2/D IV
     Route: 042
  4. PHOSPHENYTOIN [Concomitant]
  5. DEPAKENE [Concomitant]

REACTIONS (1)
  - CONVULSION [None]
